FAERS Safety Report 4485012-4 (Version None)
Quarter: 2004Q4

REPORT INFORMATION
  Report Type: 
  Country: None (occurrence: None)
  Receive Date: 20041026
  Receipt Date: 20041016
  Transmission Date: 20050328
  Serious: Yes (Other)
  Sender: FDA-Public Use
  Company Number: US-JNJFOC-20041005797

PATIENT
  Sex: Female

DRUGS (8)
  1. REMICADE [Suspect]
     Route: 042
  2. REMICADE [Suspect]
     Indication: RHEUMATOID ARTHRITIS
     Route: 042
  3. PREDNISONE [Concomitant]
     Indication: RHEUMATOID ARTHRITIS
     Dosage: IN AM
  4. LORA TAB [Concomitant]
     Indication: PAIN
  5. VERAPAMIL [Concomitant]
     Indication: BLOOD PRESSURE
  6. PAXIL CR [Concomitant]
     Indication: DEPRESSION
  7. FOLIC ACID [Concomitant]
  8. AMBIEN [Concomitant]

REACTIONS (2)
  - DRUG INEFFECTIVE [None]
  - KNEE OPERATION [None]
